FAERS Safety Report 16389122 (Version 1)
Quarter: 2019Q2

REPORT INFORMATION
  Report Type: Spontaneous
  Country: IT (occurrence: IT)
  Receive Date: 20190604
  Receipt Date: 20190604
  Transmission Date: 20190711
  Serious: Yes (Hospitalization, Other)
  Sender: FDA-Public Use
  Company Number: IT-MYLANLABS-2019M1051737

PATIENT
  Age: 14 Year
  Sex: Female

DRUGS (2)
  1. PREDNISONE. [Suspect]
     Active Substance: PREDNISONE
     Indication: STILL^S DISEASE
     Route: 042
     Dates: start: 20121013
  2. CANAKINUMAB. [Concomitant]
     Active Substance: CANAKINUMAB
     Indication: STILL^S DISEASE
     Route: 065

REACTIONS (5)
  - Cushingoid [Unknown]
  - Depression suicidal [Unknown]
  - Hypertension [Unknown]
  - Hirsutism [Unknown]
  - Skin striae [Unknown]
